FAERS Safety Report 8086787-8 (Version None)
Quarter: 2012Q1

REPORT INFORMATION
  Report Type: 
  Country: None (occurrence: None)
  Receive Date: 20120128
  Receipt Date: 20110517
  Transmission Date: 20120608
  Serious: No
  Sender: FDA-Public Use
  Company Number: US-ABBOTT-11P-163-0726821-00

PATIENT
  Sex: Female
  Weight: 74.91 kg

DRUGS (8)
  1. UNKNOWN BIRTH CONTROL IMPLANT [Concomitant]
     Indication: CONTRACEPTION
  2. UNKNOWN NEBULIZER MEDICATION [Concomitant]
     Indication: ASTHMA
  3. BACLOFEN [Concomitant]
     Indication: PRODUCT USED FOR UNKNOWN INDICATION
  4. HUMIRA [Suspect]
     Indication: SAPHO SYNDROME
     Route: 058
     Dates: start: 20080101, end: 20081001
  5. HUMIRA [Suspect]
     Route: 058
     Dates: start: 20100101, end: 20101001
  6. LEVOTHYROXINE SODIUM [Concomitant]
     Indication: THYROID DISORDER
  7. OXYCODONE HCL [Concomitant]
     Indication: PRODUCT USED FOR UNKNOWN INDICATION
  8. HUMIRA [Suspect]
     Route: 058
     Dates: start: 20110401

REACTIONS (2)
  - LYME DISEASE [None]
  - VIITH NERVE PARALYSIS [None]
